FAERS Safety Report 8507745-2 (Version None)
Quarter: 2012Q3

REPORT INFORMATION
  Report Type: 
  Country: None (occurrence: None)
  Receive Date: 20120709
  Receipt Date: 20120709
  Transmission Date: 20120928
  Serious: Yes (Other)
  Sender: FDA-Public Use
  Company Number: None

PATIENT
  Age: 66 Year
  Sex: Female

DRUGS (1)
  1. ENBREL [Suspect]
     Indication: RHEUMATOID ARTHRITIS
     Dosage: 50MG WEEKLY SQ
     Route: 058
     Dates: start: 20120628, end: 20120703

REACTIONS (4)
  - SINUS DISORDER [None]
  - MOUTH ULCERATION [None]
  - PLATELET COUNT DECREASED [None]
  - HAEMORRHAGE [None]
